FAERS Safety Report 8259583 (Version 2)
Quarter: 2013Q1

REPORT INFORMATION
  Report Type: Spontaneous
  Country: US (occurrence: US)
  Receive Date: 20111122
  Receipt Date: 20130213
  Transmission Date: 20140127
  Serious: Yes (Death, Hospitalization)
  Sender: FDA-Public Use
  Company Number: US-GLAXOSMITHKLINE-A0918177A

PATIENT
  Age: 47 Year
  Sex: Female

DRUGS (6)
  1. AVANDIA [Suspect]
     Indication: DIABETES MELLITUS
     Dosage: 2MG TWICE PER DAY
     Route: 048
     Dates: start: 20091119, end: 20091127
  2. ZOCOR [Concomitant]
  3. GLYBURIDE [Concomitant]
  4. INSULIN [Concomitant]
  5. ATIVAN [Concomitant]
  6. PERCOCET [Concomitant]

REACTIONS (2)
  - Death [Fatal]
  - Cerebrovascular accident [Unknown]
